FAERS Safety Report 12889952 (Version 1)
Quarter: 2016Q4

REPORT INFORMATION
  Report Type: Spontaneous
  Country: US (occurrence: US)
  Receive Date: 20161027
  Receipt Date: 20161027
  Transmission Date: 20170207
  Serious: No
  Sender: FDA-Public Use
  Company Number: US-DSJP-DSU-2016-128877

PATIENT
  Age: 75 Year
  Sex: Male
  Weight: 137.87 kg

DRUGS (1)
  1. SAVAYSA [Suspect]
     Active Substance: EDOXABAN TOSYLATE
     Indication: ATRIAL FIBRILLATION
     Dosage: 60 MG, QD
     Dates: start: 20160226

REACTIONS (2)
  - Hypoacusis [None]
  - Ear canal injury [Unknown]

NARRATIVE: CASE EVENT DATE: 20160804
